FAERS Safety Report 7420270-5 (Version None)
Quarter: 2011Q2

REPORT INFORMATION
  Report Type: 
  Country: None (occurrence: None)
  Receive Date: 20110407
  Receipt Date: 20110324
  Transmission Date: 20111010
  Serious: Yes (Other)
  Sender: FDA-Public Use
  Company Number: 2011SP013501

PATIENT

DRUGS (2)
  1. PEG-INTRON [Suspect]
     Indication: HEPATITIS
     Dosage: 120 MCG;
     Dates: start: 20101203, end: 20110302
  2. REBETOL [Suspect]
     Indication: HEPATITIS
     Dosage: 1000 MG; BID; PO
     Route: 048
     Dates: start: 20101203, end: 20110302

REACTIONS (1)
  - PULMONARY TUBERCULOSIS [None]
